FAERS Safety Report 9223964 (Version 2)
Quarter: 2013Q2

REPORT INFORMATION
  Report Type: Spontaneous
  Country: US (occurrence: US)
  Receive Date: 20130411
  Receipt Date: 20130531
  Transmission Date: 20140414
  Serious: No
  Sender: FDA-Public Use
  Company Number: US-BIOGENIDEC-2013BI032326

PATIENT
  Age: 27 Year
  Sex: Male

DRUGS (1)
  1. AVONEX [Suspect]
     Indication: MULTIPLE SCLEROSIS
     Route: 030
     Dates: start: 20120104

REACTIONS (5)
  - Frustration [Unknown]
  - Memory impairment [Recovered/Resolved]
  - Multiple sclerosis relapse [Unknown]
  - Headache [Unknown]
  - Confusional state [Unknown]
